FAERS Safety Report 10863604 (Version 2)
Quarter: 2015Q1

REPORT INFORMATION
  Report Type: Spontaneous
  Country: US (occurrence: US)
  Receive Date: 20150224
  Receipt Date: 20150312
  Transmission Date: 20150721
  Serious: Yes (Other)
  Sender: FDA-Public Use
  Company Number: US-UNITED THERAPEUTICS-UNT-2014-012861

PATIENT
  Sex: Female
  Weight: 83.45 kg

DRUGS (4)
  1. REVATIO [Concomitant]
     Active Substance: SILDENAFIL CITRATE
     Indication: PRODUCT USED FOR UNKNOWN INDICATION
  2. LETAIRIS [Concomitant]
     Active Substance: AMBRISENTAN
     Indication: PRODUCT USED FOR UNKNOWN INDICATION
  3. TYVASO [Suspect]
     Active Substance: TREPROSTINIL
     Indication: PULMONARY HYPERTENSION
     Dosage: 18-72 ?G, QID
     Dates: start: 20091124
  4. TYVASO [Suspect]
     Active Substance: TREPROSTINIL
     Indication: COR PULMONALE
     Dosage: 18-72 ?G, QID
     Dates: start: 20091124

REACTIONS (4)
  - Pain [Unknown]
  - Back pain [Unknown]
  - Spinal disorder [Unknown]
  - Pulmonary arterial hypertension [Unknown]

NARRATIVE: CASE EVENT DATE: 2014
